APPROVED DRUG PRODUCT: DICYCLOMINE HYDROCHLORIDE
Active Ingredient: DICYCLOMINE HYDROCHLORIDE
Strength: 10MG/ML
Dosage Form/Route: INJECTABLE;INJECTION
Application: A208353 | Product #001 | TE Code: AP
Applicant: AMERICAN REGENT INC
Approved: Feb 17, 2017 | RLD: No | RS: No | Type: RX